FAERS Safety Report 6420829-8 (Version None)
Quarter: 2009Q4

REPORT INFORMATION
  Report Type: 
  Country: None (occurrence: None)
  Receive Date: 20091030
  Receipt Date: 20091023
  Transmission Date: 20100525
  Serious: Yes (Hospitalization)
  Sender: FDA-Public Use
  Company Number: BE-SANOFI-SYNTHELABO-A01200910864

PATIENT
  Age: 68 Year
  Sex: Male

DRUGS (1)
  1. PLAVIX [Suspect]
     Indication: VASCULAR GRAFT
     Route: 048
     Dates: start: 20090319

REACTIONS (4)
  - BLINDNESS [None]
  - CONFUSIONAL STATE [None]
  - SPEECH DISORDER [None]
  - THROMBOCYTOPENIA [None]
